FAERS Safety Report 9223729 (Version 4)
Quarter: 2014Q2

REPORT INFORMATION
  Report Type: Report from Study
  Country: DE (occurrence: DE)
  Receive Date: 20130410
  Receipt Date: 20140528
  Transmission Date: 20141212
  Serious: Yes (Other)
  Sender: FDA-Public Use
  Company Number: PHHY2013DE034792

PATIENT
  Sex: Male

DRUGS (8)
  1. AMN107 [Suspect]
     Indication: CHRONIC MYELOID LEUKAEMIA
     Dosage: 300 MG, BID
     Route: 048
     Dates: start: 20120831
  2. AMN107 [Suspect]
     Dosage: 400 MG, QD
     Dates: start: 20130517
  3. METOCLOPRAMIDE HYDROCHLORIDE [Concomitant]
     Dates: start: 20120801, end: 20120913
  4. NOVALGIN                                /SCH/ [Concomitant]
     Dosage: 30 DRP, UNK
     Dates: start: 20120801, end: 20120913
  5. ALFASON [Concomitant]
     Dates: start: 20121011, end: 20121025
  6. AMLODIPIN//AMLODIPINE [Concomitant]
     Indication: HYPERTENSION
     Dosage: 7.5 MG, DAILY
     Route: 048
     Dates: start: 20130416
  7. CANDESARTAN HCT [Concomitant]
     Indication: HYPERTENSION
     Dosage: 1 DF, DAILY
     Route: 048
     Dates: start: 20130416
  8. HYDROCORTISONE BUTYRATE [Concomitant]
     Dosage: UNK
     Dates: start: 20121011, end: 20121025

REACTIONS (12)
  - Blood bilirubin increased [Recovering/Resolving]
  - Abdominal pain [Recovered/Resolved]
  - Transaminases increased [Not Recovered/Not Resolved]
  - Headache [Recovered/Resolved]
  - Pruritus [Recovered/Resolved]
  - Pain in extremity [Recovered/Resolved]
  - Dermatitis [Recovered/Resolved]
  - Rash papular [Unknown]
  - Hypothyroidism [Unknown]
  - Hypertension [Unknown]
  - Nocturia [Unknown]
  - Gilbert^s syndrome [Not Recovered/Not Resolved]
